FAERS Safety Report 4893707-3 (Version None)
Quarter: 2006Q1

REPORT INFORMATION
  Report Type: 
  Country: None (occurrence: None)
  Receive Date: 20060127
  Receipt Date: 20060124
  Transmission Date: 20060701
  Serious: Yes (Other)
  Sender: FDA-Public Use
  Company Number: US-GLAXOSMITHKLINE-A0590733A

PATIENT
  Age: 68 Year
  Sex: Female

DRUGS (4)
  1. AVANDIA [Suspect]
     Dosage: 8MG PER DAY
     Route: 048
     Dates: start: 20011101
  2. AMARYL [Concomitant]
  3. MAXAIR [Concomitant]
  4. NASACORT [Concomitant]

REACTIONS (1)
  - RETINOPATHY [None]
